FAERS Safety Report 8078484-X (Version None)
Quarter: 2012Q1

REPORT INFORMATION
  Report Type: 
  Country: None (occurrence: None)
  Receive Date: 20120123
  Receipt Date: 20120112
  Transmission Date: 20120608
  Serious: No
  Sender: FDA-Public Use
  Company Number: 2012-00009

PATIENT
  Age: 48 Year
  Sex: Male
  Weight: 117.9352 kg

DRUGS (4)
  1. ZICAM COLD REMEDY ORAL MIST [Suspect]
     Indication: NASOPHARYNGITIS
     Dosage: 4-5 SPRAYS IN MOUTH 3X DAILY
     Dates: start: 20111212, end: 20111215
  2. XT [Concomitant]
  3. FUZEON [Concomitant]
  4. EPIVIR [Concomitant]

REACTIONS (1)
  - AGEUSIA [None]
